FAERS Safety Report 14927574 (Version 2)
Quarter: 2018Q2

REPORT INFORMATION
  Report Type: Report from Study
  Country: TW (occurrence: TW)
  Receive Date: 20180523
  Receipt Date: 20180531
  Transmission Date: 20180711
  Serious: Yes (Hospitalization, Other)
  Sender: FDA-Public Use
  Company Number: TW-ASTRAZENECA-2018SE65734

PATIENT
  Age: 25686 Day
  Sex: Female

DRUGS (1)
  1. DURVALUMAB. [Suspect]
     Active Substance: DURVALUMAB
     Indication: LUNG NEOPLASM MALIGNANT
     Route: 042
     Dates: start: 20180424

REACTIONS (5)
  - Vertebral column mass [Unknown]
  - Tumour hyperprogression [Unknown]
  - Pneumothorax [Unknown]
  - Metastases to bone [Unknown]
  - Mediastinum neoplasm [Unknown]

NARRATIVE: CASE EVENT DATE: 20180429
